FAERS Safety Report 7662641-8 (Version None)
Quarter: 2011Q3

REPORT INFORMATION
  Report Type: 
  Country: None (occurrence: None)
  Receive Date: 20110805
  Receipt Date: 20100823
  Transmission Date: 20111222
  Serious: No
  Sender: FDA-Public Use
  Company Number: US-ABBOTT-10P-163-0666019-00

PATIENT
  Sex: Female
  Weight: 93.07 kg

DRUGS (3)
  1. EFFEXOR [Concomitant]
     Indication: DEPRESSION
  2. TRIAMTERENE [Concomitant]
     Indication: HYPERTENSION
  3. NIASPAN [Suspect]
     Indication: BLOOD CHOLESTEROL INCREASED
     Dates: start: 20100817, end: 20100820

REACTIONS (9)
  - SKIN BURNING SENSATION [None]
  - PARAESTHESIA [None]
  - LOSS OF CONSCIOUSNESS [None]
  - FALL [None]
  - PRURITUS [None]
  - DIZZINESS [None]
  - VOMITING [None]
  - ERYTHEMA [None]
  - ASTHENIA [None]
